FAERS Safety Report 9562190 (Version 2)
Quarter: 2013Q4

REPORT INFORMATION
  Report Type: Spontaneous
  Country: GB (occurrence: None)
  Receive Date: 20130925
  Receipt Date: 20131211
  Transmission Date: 20140711
  Serious: Yes (Hospitalization, Other)
  Sender: FDA-Public Use
  Company Number: AUR-APL-2013-07724

PATIENT
  Age: 78 Year
  Sex: Female

DRUGS (5)
  1. SERTRALINE [Suspect]
     Indication: DEPRESSION
     Route: 048
  2. ADCAL-D3 (LEKOVIT CA) [Concomitant]
  3. BACLOFEN (BACLOFEN) [Concomitant]
  4. SIMVASTATIN (SIMVASTATIN) [Concomitant]
  5. ZOPICLONE (ZOPICLONE) [Concomitant]

REACTIONS (4)
  - Fall [None]
  - Muscle rigidity [None]
  - Bruxism [None]
  - Serotonin syndrome [None]
